FAERS Safety Report 10148863 (Version 3)
Quarter: 2014Q2

REPORT INFORMATION
  Report Type: Spontaneous
  Country: JP (occurrence: JP)
  Receive Date: 20140502
  Receipt Date: 20140610
  Transmission Date: 20141212
  Serious: Yes (Other)
  Sender: FDA-Public Use
  Company Number: JP-ROCHE-1383350

PATIENT
  Age: 49 Year
  Sex: Female
  Weight: 57 kg

DRUGS (2)
  1. XELODA [Suspect]
     Indication: ADJUVANT THERAPY
     Route: 048
     Dates: start: 20140312, end: 20140409
  2. ELPLAT [Suspect]
     Indication: ADJUVANT THERAPY
     Route: 041
     Dates: start: 20140312, end: 20140409

REACTIONS (2)
  - Renal vein embolism [Not Recovered/Not Resolved]
  - Visual impairment [Recovered/Resolved]
